FAERS Safety Report 6534731-4 (Version None)
Quarter: 2010Q1

REPORT INFORMATION
  Report Type: 
  Country: None (occurrence: None)
  Receive Date: 20100108
  Receipt Date: 20091020
  Transmission Date: 20100710
  Serious: No
  Sender: FDA-Public Use
  Company Number: 2009-00666

PATIENT
  Age: 48 Year
  Sex: Male
  Weight: 68.0396 kg

DRUGS (7)
  1. COLD REMEDY RAPID MELTS WITH VITAMIN C AND ECHINACEA [Suspect]
     Dosage: Q 3 HRS - 2 DAYS
     Dates: start: 20091017, end: 20091019
  2. TOPROL-XL [Concomitant]
  3. LISINOPRIL [Concomitant]
  4. ZYRTEC [Concomitant]
  5. FISH OIL [Concomitant]
  6. ASPIRIN [Concomitant]
  7. MULTI-VITAMIN [Concomitant]

REACTIONS (1)
  - AGEUSIA [None]
